FAERS Safety Report 6428650-1 (Version None)
Quarter: 2009Q4

REPORT INFORMATION
  Report Type: 
  Country: None (occurrence: None)
  Receive Date: 20091105
  Receipt Date: 20091029
  Transmission Date: 20100525
  Serious: Yes (Other)
  Sender: FDA-Public Use
  Company Number: US-PFIZER INC-2009286999

PATIENT
  Sex: Female
  Weight: 48.534 kg

DRUGS (5)
  1. LIPITOR [Suspect]
     Indication: BLOOD TRIGLYCERIDES INCREASED
     Dosage: 20 MG, UNK
     Route: 048
     Dates: start: 20040101
  2. ATENOLOL [Concomitant]
     Indication: HYPERTENSION
  3. HYDROCHLOROTHIAZIDE [Concomitant]
  4. POTASSIUM CHLORIDE [Concomitant]
  5. PRILOSEC [Concomitant]

REACTIONS (1)
  - HEPATIC CIRRHOSIS [None]
